FAERS Safety Report 7513296-4 (Version None)
Quarter: 2011Q2

REPORT INFORMATION
  Report Type: 
  Country: None (occurrence: None)
  Receive Date: 20110531
  Receipt Date: 20110504
  Transmission Date: 20111010
  Serious: Yes (Hospitalization, Other)
  Sender: FDA-Public Use
  Company Number: DE-ASTRAZENECA-2011SE26152

PATIENT
  Age: 739 Month
  Sex: Male
  Weight: 86 kg

DRUGS (6)
  1. PANTOPRAZOLE [Suspect]
     Route: 048
  2. BISOPROLOL FUMARATE [Suspect]
  3. CLINDAMYCIN [Suspect]
  4. METOPROLOL TARTRATE [Suspect]
  5. BISOPROLOL FUMARATE [Suspect]
  6. ATACAND [Suspect]
     Route: 048

REACTIONS (2)
  - SENSATION OF PRESSURE [None]
  - SWOLLEN TONGUE [None]
